FAERS Safety Report 9894634 (Version 2)
Quarter: 2014Q1

REPORT INFORMATION
  Report Type: Spontaneous
  Country: US (occurrence: US)
  Receive Date: 20140213
  Receipt Date: 20140213
  Transmission Date: 20141002
  Serious: Yes (Other)
  Sender: FDA-Public Use
  Company Number: US-GE HEALTHCARE MEDICAL DIAGNOSTICS-OSCN-PR-0911S-0500

PATIENT
  Age: 27 Year
  Sex: Female
  Weight: 58.8 kg

DRUGS (9)
  1. GADOLINIUM (UNSPECIFIED) [Suspect]
     Indication: PRODUCT USED FOR UNKNOWN INDICATION
     Route: 042
     Dates: start: 20020826, end: 20020826
  2. GADOLINIUM (UNSPECIFIED) [Suspect]
     Route: 042
     Dates: start: 20021021, end: 20021021
  3. GADOLINIUM (UNSPECIFIED) [Suspect]
     Route: 042
     Dates: start: 20021101, end: 20021101
  4. GADOLINIUM (UNSPECIFIED) [Suspect]
     Route: 042
     Dates: start: 20030301, end: 20030301
  5. LIPITOR [Concomitant]
  6. PREDNISONE [Concomitant]
  7. EPOGEN [Concomitant]
  8. FERROUS SULFATE [Concomitant]
  9. ATENOLOL [Concomitant]

REACTIONS (1)
  - Nephrogenic systemic fibrosis [Not Recovered/Not Resolved]
